FAERS Safety Report 15903562 (Version 1)
Quarter: 2019Q1

REPORT INFORMATION
  Report Type: Spontaneous
  Country: CN (occurrence: CN)
  Receive Date: 20190203
  Receipt Date: 20190203
  Transmission Date: 20190417
  Serious: Yes (Hospitalization)
  Sender: FDA-Public Use
  Company Number: PHHY2019CN023655

PATIENT
  Age: 21 Year
  Sex: Male

DRUGS (1)
  1. CARBAMAZEPINE. [Suspect]
     Active Substance: CARBAMAZEPINE
     Indication: HEADACHE
     Dosage: 0.3 G, TID
     Route: 065

REACTIONS (3)
  - Gait disturbance [Recovered/Resolved]
  - Product use in unapproved indication [Unknown]
  - Dizziness [Recovered/Resolved]
